FAERS Safety Report 5167371-2 (Version None)
Quarter: 2006Q4

REPORT INFORMATION
  Report Type: 
  Country: None (occurrence: None)
  Receive Date: 20061130
  Receipt Date: 20061117
  Transmission Date: 20070319
  Serious: Yes (Hospitalization)
  Sender: FDA-Public Use
  Company Number: 2006PV025388

PATIENT
  Age: 68 Year
  Sex: Female

DRUGS (3)
  1. BYETTA [Suspect]
     Indication: DIABETES MELLITUS NON-INSULIN-DEPENDENT
     Dosage: 5 MCG; QD; SC
     Route: 058
     Dates: start: 20060301, end: 20060301
  2. ACTOS [Concomitant]
  3. GLIPIZIDE [Concomitant]

REACTIONS (2)
  - LOCALISED INFECTION [None]
  - TOE AMPUTATION [None]
